FAERS Safety Report 20568680 (Version 2)
Quarter: 2022Q1

REPORT INFORMATION
  Report Type: Spontaneous
  Country: US (occurrence: US)
  Receive Date: 20220308
  Receipt Date: 20220311
  Transmission Date: 20220424
  Serious: Yes (Hospitalization)
  Sender: FDA-Public Use
  Company Number: US-ELI_LILLY_AND_COMPANY-US202203002372

PATIENT
  Sex: Female
  Weight: 77.11 kg

DRUGS (3)
  1. ADCIRCA [Suspect]
     Active Substance: TADALAFIL
     Indication: Pulmonary arterial hypertension
     Dosage: UNK UNK, UNKNOWN
     Route: 065
  2. REMODULIN [Suspect]
     Active Substance: TREPROSTINIL
     Indication: Pulmonary arterial hypertension
     Dosage: UNK UNK, UNKNOWN
     Route: 065
     Dates: start: 20220210
  3. REMODULIN [Suspect]
     Active Substance: TREPROSTINIL
     Dosage: 34 NG/KG/MIN, DAILY
     Route: 042

REACTIONS (3)
  - Pyrexia [Unknown]
  - Nasal ulcer [Unknown]
  - Dyspnoea [Unknown]
